FAERS Safety Report 8959976 (Version 1)
Quarter: 2012Q4

REPORT INFORMATION
  Report Type: Report from Study
  Country: CA (occurrence: CA)
  Receive Date: 20121212
  Receipt Date: 20121212
  Transmission Date: 20130627
  Serious: Yes (Other)
  Sender: FDA-Public Use
  Company Number: CA-JNJFOC-20121201560

PATIENT
  Sex: Female
  Weight: 72 kg

DRUGS (15)
  1. REMICADE [Suspect]
     Indication: CROHN^S DISEASE
     Route: 042
  2. ATORVASTATIN [Concomitant]
     Route: 065
  3. NOVO-HYDRAZIDE [Concomitant]
     Route: 065
  4. HYDROCHLOROTHIAZIDE [Concomitant]
     Route: 065
  5. QUETIAPINE [Concomitant]
     Route: 065
  6. CYMBALTA [Concomitant]
     Route: 065
  7. CITALOPRAM [Concomitant]
     Route: 065
  8. RAN-PANTOPRAZOLE [Concomitant]
     Route: 065
  9. VITAMIN B 12 [Concomitant]
     Dosage: 1000 mcg/ml
     Route: 065
  10. LORAZEPAM [Concomitant]
     Route: 065
  11. ADVAIR [Concomitant]
     Dosage: 25/250 microgram (MCG)
     Route: 065
  12. ALENDRONATE [Concomitant]
     Route: 065
  13. VENLAFAXINE [Concomitant]
     Route: 065
  14. HYDERM CREAM [Concomitant]
     Route: 065
  15. BECLOMETHASONE DIPROPIONATE [Concomitant]
     Route: 065

REACTIONS (1)
  - Nerve injury [Not Recovered/Not Resolved]
